FAERS Safety Report 23741145 (Version 1)
Quarter: 2024Q2

REPORT INFORMATION
  Report Type: Spontaneous
  Country: DE (occurrence: DE)
  Receive Date: 20240415
  Receipt Date: 20240415
  Transmission Date: 20240716
  Serious: Yes (Hospitalization, Other)
  Sender: FDA-Public Use
  Company Number: DE-SANOFI US-2021SA390963

PATIENT
  Age: 52 Year
  Sex: Female
  Weight: 62 kg

DRUGS (8)
  1. COMIRNATY (TOZINAMERAN) [Suspect]
     Active Substance: TOZINAMERAN
     Indication: COVID-19 immunisation
     Dosage: 2ND VACCINE
     Route: 065
  2. COMIRNATY (TOZINAMERAN) [Suspect]
     Active Substance: TOZINAMERAN
     Dosage: SINGLE DOSE
     Route: 065
     Dates: end: 20210415
  3. CORTISONE [Suspect]
     Active Substance: CORTISONE
     Indication: Product used for unknown indication
     Dosage: ALTERNATIVE TO VOLON A
     Route: 065
     Dates: end: 20200813
  4. OCREVUS [Suspect]
     Active Substance: OCRELIZUMAB
     Indication: Progressive relapsing multiple sclerosis
     Dosage: 600.000MG
     Route: 042
     Dates: start: 20210812
  5. OCREVUS [Suspect]
     Active Substance: OCRELIZUMAB
     Indication: Relapsing-remitting multiple sclerosis
     Dosage: 600.000MG
     Route: 042
     Dates: start: 20180523
  6. OCREVUS [Suspect]
     Active Substance: OCRELIZUMAB
     Indication: Secondary progressive multiple sclerosis
     Dosage: 600.000MG
     Route: 042
  7. PANTOPRAZOLE [Suspect]
     Active Substance: PANTOPRAZOLE
     Indication: Product used for unknown indication
     Dosage: 40 MG
     Route: 065
  8. PANTOPRAZOLE [Suspect]
     Active Substance: PANTOPRAZOLE
     Dosage: 40 MG
     Route: 065

REACTIONS (45)
  - Cystitis [Not Recovered/Not Resolved]
  - Cataract [Not Recovered/Not Resolved]
  - Urogenital fistula [Recovered/Resolved]
  - Cushing^s syndrome [Not Recovered/Not Resolved]
  - Faeces soft [Recovered/Resolved]
  - Folate deficiency [Recovered/Resolved]
  - Seborrhoeic keratosis [Unknown]
  - Oral herpes [Recovered/Resolved]
  - Wound [Recovered/Resolved]
  - SARS-CoV-2 antibody test negative [Not Recovered/Not Resolved]
  - Gamma-glutamyltransferase increased [Recovered/Resolved]
  - Flatulence [Recovered/Resolved]
  - Asthenia [Not Recovered/Not Resolved]
  - Pain [Recovered/Resolved]
  - Alopecia [Recovered/Resolved]
  - Nasopharyngitis [Recovered/Resolved]
  - Urine odour abnormal [Recovering/Resolving]
  - Inappropriate schedule of product administration [Unknown]
  - B-lymphocyte count decreased [Recovered/Resolved]
  - Oropharyngeal pain [Recovered/Resolved]
  - Tooth fracture [Recovered/Resolved]
  - Platelet count increased [Recovered/Resolved]
  - Uterine enlargement [Recovered/Resolved]
  - Intestinal atony [Unknown]
  - Muscle spasticity [Not Recovered/Not Resolved]
  - Throat irritation [Recovered/Resolved]
  - Chronic gastritis [Not Recovered/Not Resolved]
  - Intervertebral disc protrusion [Recovered/Resolved]
  - Osteoporosis [Not Recovered/Not Resolved]
  - Urinary tract infection [Recovered/Resolved]
  - Dry skin [Recovered/Resolved]
  - Muscle twitching [Recovered/Resolved]
  - Blood pressure increased [Recovered/Resolved]
  - Weight increased [Not Recovered/Not Resolved]
  - Chills [Unknown]
  - Atypical migraine [Unknown]
  - Lymphocyte count decreased [Recovered/Resolved]
  - Muscular weakness [Not Recovered/Not Resolved]
  - Calcinosis [Recovered/Resolved]
  - Throat tightness [Recovered/Resolved]
  - Bone density decreased [Not Recovered/Not Resolved]
  - Off label use [Unknown]
  - Vitamin D decreased [Recovered/Resolved]
  - Platelet count decreased [Recovered/Resolved]
  - Pyrexia [Unknown]

NARRATIVE: CASE EVENT DATE: 20180701
